FAERS Safety Report 9214952 (Version 3)
Quarter: 2013Q4

REPORT INFORMATION
  Report Type: Spontaneous
  Country: FR (occurrence: FR)
  Receive Date: 20130405
  Receipt Date: 20131115
  Transmission Date: 20140711
  Serious: Yes (Other)
  Sender: FDA-Public Use
  Company Number: FR-VERTEX PHARMACEUTICALS INC.-2013-004537

PATIENT
  Age: 60 Year
  Sex: Male
  Weight: 129 kg

DRUGS (10)
  1. INCIVO [Suspect]
     Indication: HEPATITIS C
     Dosage: 750 MG, TID
     Route: 048
     Dates: start: 20120411, end: 20120703
  2. PEG-INTERFERON [Suspect]
     Indication: HEPATITIS C
     Dosage: 100 ?G, QW
     Dates: start: 20120207, end: 20120704
  3. RIBAVIRIN [Concomitant]
     Indication: HEPATITIS C
     Dosage: 600 MG, QD
     Dates: start: 20120207, end: 20120403
  4. NEORECORMON [Concomitant]
     Indication: ANAEMIA
     Dosage: 60000
     Dates: start: 20120207, end: 20120703
  5. AVLOCARDYL [Concomitant]
     Indication: VARICES OESOPHAGEAL
     Dosage: UNK
     Dates: start: 20120207
  6. STILNOX [Concomitant]
     Indication: SEASONAL AFFECTIVE DISORDER
     Dosage: UNK
     Dates: start: 20120403
  7. STRESAM [Concomitant]
     Indication: SEASONAL AFFECTIVE DISORDER
     Dosage: UNK
     Dates: start: 20120403
  8. INIPOMP [Concomitant]
     Dosage: UNK
     Dates: start: 20120403
  9. DEXERYL [Concomitant]
     Indication: RASH
     Dosage: UNK
     Dates: start: 20120411
  10. GM-CSF [Concomitant]
     Indication: NEUTROPENIA
     Dates: start: 20120509, end: 20120703

REACTIONS (5)
  - Neutropenia [Recovered/Resolved]
  - Leukopenia [Unknown]
  - Lymphopenia [Unknown]
  - Anaemia [Unknown]
  - Thrombocytopenia [Unknown]
